FAERS Safety Report 11272308 (Version 1)
Quarter: 2015Q3

REPORT INFORMATION
  Report Type: Spontaneous
  Country: US (occurrence: None)
  Receive Date: 20150713
  Receipt Date: 20150713
  Transmission Date: 20151125
  Serious: Yes (Hospitalization)
  Sender: FDA-Public Use
  Company Number: None

PATIENT
  Age: 57 Year
  Sex: Male

DRUGS (1)
  1. AZATHIOPRINE 50MG TABLET MYLAN PHARM INC [Suspect]
     Active Substance: AZATHIOPRINE
     Dosage: 2 TABLETS QD ORAL
     Route: 048
     Dates: start: 20150122

REACTIONS (4)
  - Gastric haemorrhage [None]
  - Haemoglobin decreased [None]
  - Internal haemorrhage [None]
  - Oesophageal haemorrhage [None]

NARRATIVE: CASE EVENT DATE: 20150625
